FAERS Safety Report 24131086 (Version 1)
Quarter: 2024Q3

REPORT INFORMATION
  Report Type: Spontaneous
  Country: GB (occurrence: GB)
  Receive Date: 20240724
  Receipt Date: 20240724
  Transmission Date: 20241017
  Serious: Yes (Hospitalization, Other)
  Sender: CHEPLAPHARM
  Company Number: None

PATIENT
  Age: 33 Year
  Sex: Female
  Weight: 125 kg

DRUGS (4)
  1. ORLISTAT [Suspect]
     Active Substance: ORLISTAT
     Indication: Weight decreased
     Dosage: 120MG THREE TIMES A DAY?DAILY DOSE: 360 MILLIGRAM
     Dates: start: 20230801, end: 2023
  2. ORLISTAT [Suspect]
     Active Substance: ORLISTAT
     Indication: Weight decreased
     Dosage: 120MG THREE TIMES A DAY?DAILY DOSE: 360 MILLIGRAM
     Dates: start: 202402, end: 20240704
  3. NORETHINDRONE [Concomitant]
     Active Substance: NORETHINDRONE
     Indication: Adverse drug reaction
     Dates: start: 20240605, end: 20240615
  4. AMITRIPTYLINE [Concomitant]
     Active Substance: AMITRIPTYLINE
     Indication: Anxiety
     Dates: start: 20240201

REACTIONS (3)
  - Cholelithiasis [Recovering/Resolving]
  - Contraindicated product administered [Unknown]
  - Abortion spontaneous [Unknown]

NARRATIVE: CASE EVENT DATE: 20230101
